FAERS Safety Report 9419633 (Version 1)
Quarter: 2013Q3

REPORT INFORMATION
  Report Type: Spontaneous
  Country: FR (occurrence: FR)
  Receive Date: 20130725
  Receipt Date: 20130725
  Transmission Date: 20140515
  Serious: Yes (Hospitalization)
  Sender: FDA-Public Use
  Company Number: FR-BAYER-2013-087428

PATIENT
  Age: 63 Year
  Sex: Male

DRUGS (6)
  1. CIFLOX [Suspect]
     Indication: BACTERIAL SEPSIS
     Dosage: UNK
     Route: 042
     Dates: start: 20130611, end: 20130620
  2. VANCOMYCINE PCH [Suspect]
     Indication: BACTERIAL SEPSIS
     Dosage: UNK
     Route: 042
     Dates: start: 20130606, end: 20130617
  3. CILASTATIN W/IMIPENEM [Suspect]
     Indication: BACTERIAL SEPSIS
     Dosage: UNK
     Route: 042
     Dates: start: 20130611, end: 20130623
  4. ZYVOXID [Suspect]
     Indication: BACTERIAL SEPSIS
     Dosage: UNK
     Route: 042
     Dates: start: 20130618, end: 20130623
  5. LARGACTIL [Concomitant]
  6. CANCIDAS [Concomitant]

REACTIONS (1)
  - Drug reaction with eosinophilia and systemic symptoms [Recovering/Resolving]
